FAERS Safety Report 19280739 (Version 2)
Quarter: 2021Q2

REPORT INFORMATION
  Report Type: Spontaneous
  Country: US (occurrence: US)
  Receive Date: 20210521
  Receipt Date: 20210606
  Transmission Date: 20210717
  Serious: No
  Sender: FDA-Public Use
  Company Number: US-AMGEN-USASP2021074703

PATIENT
  Age: 57 Year
  Sex: Female
  Weight: 78.1 kg

DRUGS (2)
  1. MVASI [Suspect]
     Active Substance: BEVACIZUMAB-AWWB
     Dosage: UNK
     Route: 042
  2. MVASI [Suspect]
     Active Substance: BEVACIZUMAB-AWWB
     Indication: LUNG NEOPLASM MALIGNANT
     Dosage: 1100 MILLIGRAM, Q3WK
     Route: 042
     Dates: start: 2021

REACTIONS (2)
  - Hypertension [Unknown]
  - Feeling abnormal [Unknown]

NARRATIVE: CASE EVENT DATE: 20210415
